FAERS Safety Report 10615177 (Version 1)
Quarter: 2014Q4

REPORT INFORMATION
  Report Type: Spontaneous
  Country: DK (occurrence: None)
  Receive Date: 20141124
  Receipt Date: 20141124
  Transmission Date: 20150529
  Serious: Yes (Hospitalization, Other)
  Sender: FDA-Public Use
  Company Number: ADR-2014-02220

PATIENT
  Age: 41 Year
  Sex: Female

DRUGS (3)
  1. BACLOFEN (ORAL) [Suspect]
     Active Substance: BACLOFEN
     Indication: PRODUCT USED FOR UNKNOWN INDICATION
     Dosage: MEAN DOSE
  2. ALCOHOL. [Suspect]
     Active Substance: ALCOHOL
  3. UNSPECIFIED PSYCHOTROPIC OR ANTI-EPILEPTIC [Suspect]
     Active Substance: UNSPECIFIED INGREDIENT

REACTIONS (3)
  - Toxicity to various agents [None]
  - Delirium [None]
  - Loss of consciousness [None]

NARRATIVE: CASE EVENT DATE: 20140101
